FAERS Safety Report 5647158-4 (Version None)
Quarter: 2008Q1

REPORT INFORMATION
  Report Type: 
  Country: None (occurrence: None)
  Receive Date: 20080303
  Receipt Date: 20080227
  Transmission Date: 20080703
  Serious: Yes (Hospitalization)
  Sender: FDA-Public Use
  Company Number: US-MERCK-0802USA06112

PATIENT
  Age: 88 Year
  Sex: Female

DRUGS (6)
  1. VYTORIN [Suspect]
     Indication: BLOOD CHOLESTEROL INCREASED
     Route: 048
     Dates: start: 20070706
  2. NEXIUM [Concomitant]
     Route: 065
  3. VALIUM [Concomitant]
     Route: 065
  4. ALTACE [Concomitant]
     Route: 065
  5. TOPROL-XL [Concomitant]
     Route: 065
  6. DIURETIC (UNSPECIFIED) [Concomitant]
     Route: 065

REACTIONS (4)
  - ASTHENIA [None]
  - DIARRHOEA [None]
  - VOMITING PROJECTILE [None]
  - WEIGHT DECREASED [None]
